FAERS Safety Report 5332791-X (Version None)
Quarter: 2007Q2

REPORT INFORMATION
  Report Type: 
  Country: None (occurrence: None)
  Receive Date: 20070518
  Receipt Date: 20070504
  Transmission Date: 20071010
  Serious: Yes (Hospitalization)
  Sender: FDA-Public Use
  Company Number: 2007000821

PATIENT
  Age: 40 Year
  Sex: Male

DRUGS (2)
  1. ERLOTINIB (TABLET) (ERLOTINIB HCL) [Suspect]
     Indication: COLORECTAL CANCER
     Dosage: UNK (QD), ORAL
     Route: 048
  2. CAPECITABINE (CAPECITABINE) (INJECTION FOR INFUSION) [Suspect]
     Indication: COLORECTAL CANCER
     Dosage: 1650 MG (BID), INTRAVENOUS
     Route: 042
     Dates: start: 20070322

REACTIONS (3)
  - INTESTINAL OBSTRUCTION [None]
  - PAIN [None]
  - VOMITING [None]
